FAERS Safety Report 13211484 (Version 1)
Quarter: 2017Q1

REPORT INFORMATION
  Report Type: Spontaneous
  Country: US (occurrence: US)
  Receive Date: 20170209
  Receipt Date: 20170209
  Transmission Date: 20170428
  Serious: No
  Sender: FDA-Public Use
  Company Number: US-ALLERGAN-1662989US

PATIENT
  Sex: Female
  Weight: 59.41 kg

DRUGS (1)
  1. BOTOX [Suspect]
     Active Substance: ONABOTULINUMTOXINA
     Indication: DYSKINESIA
     Dosage: UNK UNK, SINGLE
     Route: 030
     Dates: start: 2014, end: 2014

REACTIONS (2)
  - Off label use [Unknown]
  - Dry eye [Recovered/Resolved]

NARRATIVE: CASE EVENT DATE: 2014
